FAERS Safety Report 18378953 (Version 1)
Quarter: 2020Q4

REPORT INFORMATION
  Report Type: Report from Study
  Country: None (occurrence: BR)
  Receive Date: 20201014
  Receipt Date: 20201014
  Transmission Date: 20210114
  Serious: Yes (Disabling, Other)
  Sender: FDA-Public Use
  Company Number: BR-ABBVIE-20K-020-3603998-00

PATIENT
  Sex: Female
  Weight: 90 kg

DRUGS (3)
  1. MORPHINE [Suspect]
     Active Substance: MORPHINE
     Indication: SPINAL PAIN
     Route: 065
  2. HUMIRA [Suspect]
     Active Substance: ADALIMUMAB
     Indication: PRODUCT USED FOR UNKNOWN INDICATION
     Route: 058
  3. PANTOPRAZOLE [Concomitant]
     Active Substance: PANTOPRAZOLE
     Indication: GASTRIC DISORDER
     Dosage: AT 6:00 A.M

REACTIONS (31)
  - Anaphylactic shock [Unknown]
  - Mobility decreased [Unknown]
  - Blood triglycerides increased [Unknown]
  - Infection [Unknown]
  - Immunodeficiency [Not Recovered/Not Resolved]
  - Rheumatic disorder [Unknown]
  - Sciatic nerve neuropathy [Unknown]
  - Corrective lens user [Unknown]
  - Joint swelling [Recovering/Resolving]
  - Anaemia [Not Recovered/Not Resolved]
  - Diabetes mellitus [Not Recovered/Not Resolved]
  - Heart rate increased [Not Recovered/Not Resolved]
  - Adverse event [Unknown]
  - Surgery [Unknown]
  - Cataract [Not Recovered/Not Resolved]
  - Gait disturbance [Not Recovered/Not Resolved]
  - Spinal operation [Unknown]
  - Spinal disorder [Not Recovered/Not Resolved]
  - Reading disorder [Not Recovered/Not Resolved]
  - Intervertebral disc degeneration [Unknown]
  - Thirst [Not Recovered/Not Resolved]
  - Blister [Unknown]
  - Red blood cell count decreased [Not Recovered/Not Resolved]
  - Pain [Unknown]
  - Dental implantation [Unknown]
  - Peripheral swelling [Recovering/Resolving]
  - Hypertension [Unknown]
  - Nosocomial infection [Recovering/Resolving]
  - Renal disorder [Unknown]
  - Pustule [Unknown]
  - Spinal pain [Not Recovered/Not Resolved]
